FAERS Safety Report 17767843 (Version 1)
Quarter: 2020Q2

REPORT INFORMATION
  Report Type: Spontaneous
  Country: JP (occurrence: JP)
  Receive Date: 20200511
  Receipt Date: 20200511
  Transmission Date: 20200714
  Serious: Yes (Life-Threatening, Other)
  Sender: FDA-Public Use
  Company Number: JP-FRESENIUS KABI-FK202004541

PATIENT
  Age: 40 Year
  Sex: Male

DRUGS (4)
  1. PARACETAMOL [Concomitant]
     Active Substance: ACETAMINOPHEN
     Indication: PAIN MANAGEMENT
     Dosage: UNKNOWN
     Route: 041
  2. FENTANYL (MANUFACTURER UNKNOWN) [Suspect]
     Active Substance: FENTANYL
     Indication: PAIN MANAGEMENT
     Route: 050
  3. FENTANYL (MANUFACTURER UNKNOWN) [Suspect]
     Active Substance: FENTANYL
     Route: 050
  4. FENTANYL (MANUFACTURER UNKNOWN) [Suspect]
     Active Substance: FENTANYL
     Route: 050

REACTIONS (8)
  - Decreased appetite [Unknown]
  - Therapeutic product effect decreased [Recovered/Resolved]
  - Hyperaesthesia [Recovered/Resolved]
  - Respiratory depression [Recovered/Resolved]
  - Condition aggravated [Unknown]
  - Condition aggravated [Recovered/Resolved]
  - Nausea [Recovered/Resolved]
  - Wound infection [Recovered/Resolved]
